FAERS Safety Report 24303908 (Version 1)
Quarter: 2024Q3

REPORT INFORMATION
  Report Type: Spontaneous
  Country: US (occurrence: US)
  Receive Date: 20240910
  Receipt Date: 20240910
  Transmission Date: 20241017
  Serious: Yes (Other)
  Sender: BAYER
  Company Number: US-BAYER-2024A128335

PATIENT
  Age: 14 Year
  Sex: Male

DRUGS (2)
  1. KOVALTRY [Suspect]
     Active Substance: ANTIHEMOPHILIC FACTOR, HUMAN RECOMBINANT
     Indication: Factor VIII deficiency
     Dosage: KOVALTRY 2000/ INFUSE 2308-2885 UNITS SLOW IV PUSH EVERY OTHER DAY FOR PROPHY AND AS NEEDED FOR MAJO
     Route: 042
     Dates: start: 201501
  2. KOVALTRY [Suspect]
     Active Substance: ANTIHEMOPHILIC FACTOR, HUMAN RECOMBINANT
     Indication: Prophylaxis
     Dosage: KOVALTRY 500/ INFUSE 1154-1442 UNITS SLOW IV PUSH AS NEEDED FOR MINOR/BREAKTHROUGH BLEEDS.
     Route: 042
     Dates: start: 201501

REACTIONS (1)
  - Haemorrhage [Recovered/Resolved]

NARRATIVE: CASE EVENT DATE: 20240807
